FAERS Safety Report 20740736 (Version 1)
Quarter: 2022Q2

REPORT INFORMATION
  Report Type: Spontaneous
  Country: FR (occurrence: FR)
  Receive Date: 20220422
  Receipt Date: 20220422
  Transmission Date: 20220721
  Serious: Yes (Other)
  Sender: FDA-Public Use
  Company Number: None

PATIENT
  Age: 38 Year
  Sex: Male

DRUGS (3)
  1. TRAMADOL [Interacting]
     Active Substance: TRAMADOL
     Indication: Neuralgia
     Dosage: UNK
  2. PREGABALIN [Interacting]
     Active Substance: PREGABALIN
     Indication: Neuralgia
     Dosage: UNK
  3. AMITRIPTYLINE [Interacting]
     Active Substance: AMITRIPTYLINE
     Indication: Product used for unknown indication
     Dosage: UNK

REACTIONS (9)
  - Vomiting [Unknown]
  - Psychomotor skills impaired [Unknown]
  - Nausea [Unknown]
  - Palpitations [Unknown]
  - Balance disorder [Unknown]
  - Disturbance in attention [Unknown]
  - Dizziness [Unknown]
  - Confusional state [Unknown]
  - Drug interaction [Unknown]

NARRATIVE: CASE EVENT DATE: 20210101
